FAERS Safety Report 10346822 (Version 1)
Quarter: 2014Q3

REPORT INFORMATION
  Report Type: Spontaneous
  Country: US (occurrence: None)
  Receive Date: 20140725
  Receipt Date: 20140725
  Transmission Date: 20150326
  Serious: Yes (Hospitalization)
  Sender: FDA-Public Use
  Company Number: None

PATIENT
  Age: 66 Year
  Sex: Male
  Weight: 93.2 kg

DRUGS (1)
  1. OXALIPLATIN. [Suspect]
     Active Substance: OXALIPLATIN
     Indication: COLON CANCER METASTATIC
     Route: 042
     Dates: start: 20140718, end: 20140718

REACTIONS (7)
  - Pruritus [None]
  - Urinary incontinence [None]
  - Vomiting [None]
  - Faecal incontinence [None]
  - Flushing [None]
  - Nausea [None]
  - Chills [None]

NARRATIVE: CASE EVENT DATE: 20140718
